FAERS Safety Report 10244391 (Version 1)
Quarter: 2014Q2

REPORT INFORMATION
  Report Type: Report from Study
  Country: AU (occurrence: None)
  Receive Date: 20140616
  Receipt Date: 20140616
  Transmission Date: 20141212
  Serious: Yes (Hospitalization)
  Sender: FDA-Public Use
  Company Number: 2014-19756

PATIENT
  Age: 82 Year
  Sex: Female

DRUGS (1)
  1. EYLEA [Suspect]
     Indication: AGE-RELATED MACULAR DEGENERATION
     Dosage: OS
     Route: 031
     Dates: start: 201311

REACTIONS (3)
  - Back pain [None]
  - Eye pain [None]
  - Corneal abrasion [None]
